FAERS Safety Report 10630479 (Version 2)
Quarter: 2014Q4

REPORT INFORMATION
  Report Type: Spontaneous
  Country: US (occurrence: US)
  Receive Date: 20141205
  Receipt Date: 20141205
  Transmission Date: 20150529
  Serious: No
  Sender: FDA-Public Use
  Company Number: US-BRISTOL-MYERS SQUIBB COMPANY-19296854

PATIENT
  Age: 67 Year
  Sex: Male
  Weight: 134.27 kg

DRUGS (22)
  1. SYMLIN [Suspect]
     Active Substance: PRAMLINTIDE ACETATE
     Indication: TYPE 2 DIABETES MELLITUS
     Route: 058
     Dates: start: 200508, end: 20051024
  2. HUMALOG [Concomitant]
     Active Substance: INSULIN LISPRO
     Indication: TYPE 2 DIABETES MELLITUS
  3. SYMLIN [Suspect]
     Active Substance: PRAMLINTIDE ACETATE
     Indication: TYPE 2 DIABETES MELLITUS
     Dosage: SYMLIN INJECTION
     Route: 058
     Dates: start: 20051027
  4. VYTORIN [Concomitant]
     Active Substance: EZETIMIBE\SIMVASTATIN
  5. SAW PALMETTO [Concomitant]
     Active Substance: SAW PALMETTO
     Dosage: DOSE UNIT=2
     Route: 048
  6. MEDROL [Concomitant]
     Active Substance: METHYLPREDNISOLONE
     Indication: PAIN
     Dates: start: 20051004, end: 20051009
  7. FUROSEMIDE. [Concomitant]
     Active Substance: FUROSEMIDE
  8. FISH OIL [Concomitant]
     Active Substance: FISH OIL
     Indication: VITAMIN SUPPLEMENTATION
     Route: 048
  9. MULTIVITAMINS [Concomitant]
     Active Substance: VITAMINS
     Dosage: DOSE UNIT:1
     Route: 048
  10. LISINOPRIL. [Concomitant]
     Active Substance: LISINOPRIL
  11. VITAMIN E [Concomitant]
     Active Substance: .ALPHA.-TOCOPHEROL
     Indication: VITAMIN SUPPLEMENTATION
     Dosage: DOSE UNIT:400
     Route: 048
  12. NIACIN. [Concomitant]
     Active Substance: NIACIN
     Dosage: DOSE UNIT:500
     Route: 048
  13. EPIDURAL [Concomitant]
     Indication: PAIN
     Dates: start: 20051012, end: 20051012
  14. IMDUR [Concomitant]
     Active Substance: ISOSORBIDE MONONITRATE
  15. VITAMIN B6 [Concomitant]
     Active Substance: PYRIDOXINE HYDROCHLORIDE
     Dosage: DOSE UNIT:1
     Route: 048
  16. BYETTA [Suspect]
     Active Substance: EXENATIDE
     Indication: TYPE 2 DIABETES MELLITUS
     Dosage: BYETTA INJECTION
     Route: 058
     Dates: start: 20051024, end: 20051026
  17. AVANDIA [Concomitant]
     Active Substance: ROSIGLITAZONE MALEATE
     Indication: TYPE 2 DIABETES MELLITUS
     Dates: end: 2004
  18. COREG [Concomitant]
     Active Substance: CARVEDILOL
  19. ESTER-C [Concomitant]
     Active Substance: CALCIUM\VITAMINS
     Indication: VITAMIN SUPPLEMENTATION
  20. GLUCOPHAGE [Concomitant]
     Active Substance: METFORMIN HYDROCHLORIDE
     Indication: TYPE 2 DIABETES MELLITUS
     Dates: end: 2004
  21. ALLOPURINOL. [Concomitant]
     Active Substance: ALLOPURINOL
     Indication: NEPHROLITHIASIS
  22. ASA [Concomitant]
     Active Substance: ASPIRIN
     Route: 048

REACTIONS (3)
  - Weight decreased [Not Recovered/Not Resolved]
  - Decreased appetite [Unknown]
  - Blood glucose increased [Recovered/Resolved]

NARRATIVE: CASE EVENT DATE: 2005
